FAERS Safety Report 7106556 (Version 16)
Quarter: 2015Q2

REPORT INFORMATION
  Report Type: Spontaneous
  Country: CH (occurrence: CH)
  Receive Date: 20090907
  Receipt Date: 20150610
  Transmission Date: 20150821
  Serious: Yes (Hospitalization, Disabling)
  Sender: FDA-Public Use
  Company Number: CH-BIOGENIDEC-2009BI027877

PATIENT
  Age: 49 Year
  Sex: Female
  Weight: 53 kg

DRUGS (4)
  1. CITALOPRAM [Concomitant]
     Active Substance: CITALOPRAM HYDROBROMIDE
  2. BACLOFEN. [Concomitant]
     Active Substance: BACLOFEN
  3. TYSABRI [Suspect]
     Active Substance: NATALIZUMAB
     Indication: RELAPSING-REMITTING MULTIPLE SCLEROSIS
     Route: 042
     Dates: start: 20080129, end: 20090811
  4. TRAZODONE [Concomitant]
     Active Substance: TRAZODONE HYDROCHLORIDE
     Indication: DEPRESSION

REACTIONS (9)
  - Progressive multifocal leukoencephalopathy [Unknown]
  - Sinusitis [Unknown]
  - Epilepsy [Unknown]
  - Immune reconstitution inflammatory syndrome [Unknown]
  - Respiratory tract infection [Unknown]
  - Hemiparesis [Not Recovered/Not Resolved]
  - Headache [Unknown]
  - Herpes zoster [Recovered/Resolved]
  - Multiple sclerosis [Unknown]

NARRATIVE: CASE EVENT DATE: 200901
